FAERS Safety Report 15506058 (Version 2)
Quarter: 2019Q1

REPORT INFORMATION
  Report Type: Spontaneous
  Country: JP (occurrence: JP)
  Receive Date: 20181016
  Receipt Date: 20190329
  Transmission Date: 20190417
  Serious: Yes (Life-Threatening, Other)
  Sender: FDA-Public Use
  Company Number: JP-009507513-1803JPN001907J

PATIENT
  Age: 83 Year
  Sex: Male
  Weight: 59 kg

DRUGS (1)
  1. KEYTRUDA [Suspect]
     Active Substance: PEMBROLIZUMAB
     Indication: NON-SMALL CELL LUNG CANCER
     Dosage: 200 MG, Q3W
     Route: 041
     Dates: start: 20180105, end: 20180130

REACTIONS (4)
  - Malignant neoplasm progression [Unknown]
  - Interstitial lung disease [Recovered/Resolved]
  - Lymphangiosis carcinomatosa [Unknown]
  - Dermatomyositis [Recovered/Resolved]

NARRATIVE: CASE EVENT DATE: 20180220
